FAERS Safety Report 4325239-5 (Version None)
Quarter: 2004Q1

REPORT INFORMATION
  Report Type: 
  Country: None (occurrence: None)
  Receive Date: 20040324
  Receipt Date: 20040309
  Transmission Date: 20041129
  Serious: Yes (Hospitalization)
  Sender: FDA-Public Use
  Company Number: AU-JNJFOC-20040304204

PATIENT
  Age: 70 Year
  Sex: Female

DRUGS (3)
  1. TRAMAL (TRAMADOL HYDROCHLORIDE) UNSPECIFIED [Suspect]
     Indication: GENERAL SYMPTOM
     Dosage: 50 MG, IN 1 DAY
     Dates: start: 20030811, end: 20030813
  2. ASPIRIN [Concomitant]
  3. LIPITOR [Concomitant]

REACTIONS (1)
  - DELUSIONAL DISORDER, PERSECUTORY TYPE [None]
